FAERS Safety Report 10505119 (Version 1)
Quarter: 2014Q3

REPORT INFORMATION
  Report Type: Spontaneous
  Country: US (occurrence: None)
  Receive Date: 20140915
  Receipt Date: 20140915
  Transmission Date: 20150326
  Serious: Yes (Other)
  Sender: FDA-Public Use
  Company Number: PHEH2013US026526

PATIENT
  Sex: Female

DRUGS (4)
  1. MICROZIDE (HYDROCHLOROTHIAZIDE) [Concomitant]
  2. ALPRAZOLAM (ALPRAZOLAM) [Concomitant]
     Active Substance: ALPRAZOLAM
  3. OXYCODONE/APAP (OXYCODONE, PARACETAMOL), [Concomitant]
  4. DIOVAN [Suspect]
     Active Substance: VALSARTAN
     Indication: HYPERTENSION
     Dosage: 2 DF (80MG), DAILY, ORAL
     Route: 048

REACTIONS (3)
  - Blood pressure increased [None]
  - Drug ineffective [None]
  - Incorrect dose administered [None]
